FAERS Safety Report 25964787 (Version 1)
Quarter: 2025Q4

REPORT INFORMATION
  Report Type: Spontaneous
  Country: CN (occurrence: CN)
  Receive Date: 20251027
  Receipt Date: 20251027
  Transmission Date: 20260117
  Serious: Yes (Hospitalization)
  Sender: BAYER HEALTHCARE PHARMACEUTICALS INC.
  Company Number: CN-BAYER-2025A141510

PATIENT
  Age: 76 Year
  Sex: Male
  Weight: 45 kg

DRUGS (4)
  1. ULTRAVIST [Suspect]
     Active Substance: IOPROMIDE
     Indication: Computerised tomogram thorax
     Dosage: 10 ML, ONCE
     Route: 040
     Dates: start: 20251020, end: 20251020
  2. ULTRAVIST [Suspect]
     Active Substance: IOPROMIDE
     Indication: Computerised tomogram abdomen
     Dosage: 65 ML, 2ML/S, ONCE
     Route: 040
     Dates: start: 20251020, end: 20251020
  3. ULTRAVIST [Suspect]
     Active Substance: IOPROMIDE
     Indication: Computerised tomogram pelvis
  4. ULTRAVIST [Suspect]
     Active Substance: IOPROMIDE
     Indication: Lung squamous cell carcinoma stage IV

REACTIONS (8)
  - Dystonia [Not Recovered/Not Resolved]
  - Somnolence [Not Recovered/Not Resolved]
  - Hypotension [Not Recovered/Not Resolved]
  - Mental impairment [Not Recovered/Not Resolved]
  - Cyanosis [None]
  - Foaming at mouth [None]
  - Trismus [None]
  - Muscle rigidity [None]

NARRATIVE: CASE EVENT DATE: 20251020
